FAERS Safety Report 9861966 (Version 2)
Quarter: 2014Q1

REPORT INFORMATION
  Report Type: Spontaneous
  Country: SE (occurrence: SE)
  Receive Date: 20140203
  Receipt Date: 20140220
  Transmission Date: 20141002
  Serious: Yes (Other)
  Sender: FDA-Public Use
  Company Number: SE-ELI_LILLY_AND_COMPANY-SE201401008652

PATIENT
  Age: 83 Year
  Sex: Male

DRUGS (2)
  1. CYMBALTA [Suspect]
     Indication: POLYNEUROPATHY
     Dosage: 60 MG, UNKNOWN
     Route: 048
  2. LOSARTAN + HIDROCLOROTIAZIDA [Suspect]
     Indication: PRODUCT USED FOR UNKNOWN INDICATION

REACTIONS (14)
  - Loss of consciousness [Unknown]
  - Syncope [Unknown]
  - Atrial fibrillation [Recovered/Resolved]
  - Toxicity to various agents [Unknown]
  - Ventricular extrasystoles [Recovered/Resolved]
  - Bundle branch block right [Recovered/Resolved]
  - Supraventricular extrasystoles [Recovered/Resolved]
  - Off label use [Recovered/Resolved]
  - Urinary tract infection [Unknown]
  - Cold sweat [Unknown]
  - Nausea [Unknown]
  - Vomiting [Unknown]
  - Hypotension [Recovered/Resolved]
  - Hypokalaemia [Unknown]
